FAERS Safety Report 6401801-0 (Version None)
Quarter: 2009Q4

REPORT INFORMATION
  Report Type: 
  Country: None (occurrence: None)
  Receive Date: 20091015
  Receipt Date: 20091006
  Transmission Date: 20100525
  Serious: Yes (Other)
  Sender: FDA-Public Use
  Company Number: US-WYE-H11474209

PATIENT
  Age: 78 Year
  Sex: Male
  Weight: 102.15 kg

DRUGS (8)
  1. ADVIL [Suspect]
     Indication: HEADACHE
     Route: 048
     Dates: start: 20091005, end: 20091005
  2. SIMVASTATIN [Concomitant]
     Indication: HYPERCHOLESTEROLAEMIA
     Route: 048
     Dates: start: 20030101
  3. MOXIFLOXACIN HCL [Concomitant]
     Indication: ANTIBIOTIC THERAPY
     Dosage: UNKNOWN DOSE DAILY
     Route: 048
     Dates: start: 20091002
  4. ACETYLSALICYLIC ACID [Concomitant]
     Dosage: UNKNOWN DOSE DAILY
     Route: 048
     Dates: start: 20030101
  5. VITAMIN E [Concomitant]
     Indication: NUTRITIONAL SUPPORT
     Route: 048
  6. CALCIUM WITH VITAMIN D [Concomitant]
     Indication: MINERAL SUPPLEMENTATION
     Route: 048
  7. LISINOPRIL [Concomitant]
     Indication: HYPERTENSION
     Route: 048
     Dates: start: 20030101
  8. METFORMIN HYDROCHLORIDE [Concomitant]
     Indication: DIABETES MELLITUS
     Route: 048
     Dates: start: 19970101

REACTIONS (4)
  - DYSPNOEA [None]
  - PRURITUS GENERALISED [None]
  - SWELLING FACE [None]
  - SWOLLEN TONGUE [None]
